FAERS Safety Report 22188581 (Version 1)
Quarter: 2023Q2

REPORT INFORMATION
  Report Type: Spontaneous
  Country: GB (occurrence: GB)
  Receive Date: 20230409
  Receipt Date: 20230409
  Transmission Date: 20230721
  Serious: Yes (Disabling)
  Sender: FDA-Public Use
  Company Number: GB-MHRA-TPP16954944C2143225YC1653988573810

PATIENT
  Age: 62 Year
  Sex: Female
  Weight: 62 kg

DRUGS (5)
  1. ALENDRONIC ACID [Suspect]
     Active Substance: ALENDRONIC ACID
     Indication: Ill-defined disorder
     Dosage: UNK
     Route: 065
     Dates: start: 20220531
  2. ALENDRONIC ACID [Suspect]
     Active Substance: ALENDRONIC ACID
     Dosage: 70 MILLIGRAM, EVERY WEEK
     Route: 065
     Dates: start: 20210524, end: 20220531
  3. ALENDRONIC ACID [Concomitant]
     Active Substance: ALENDRONIC ACID
     Indication: Ill-defined disorder
     Dosage: UNK (TAKE ONE WEEKLY)
     Route: 065
     Dates: start: 20210524, end: 20220531
  4. CODEINE PHOSPHATE [Concomitant]
     Active Substance: CODEINE PHOSPHATE
     Indication: Ill-defined disorder
     Dosage: UNK (TAKE ONE 4 TIMES/DAY IF NEEDED)
     Route: 065
     Dates: start: 20220408, end: 20220415
  5. THEICAL D3 [Concomitant]
     Indication: Ill-defined disorder
     Dosage: 1 DOSAGE FORM, ONCE A DAY (TAKEN SEPARATELY FROM OTHER TABLETS)
     Route: 065
     Dates: start: 20210524

REACTIONS (2)
  - Depression [Recovered/Resolved]
  - Fatigue [Recovered/Resolved]

NARRATIVE: CASE EVENT DATE: 20220531
